FAERS Safety Report 8052988-8 (Version None)
Quarter: 2012Q1

REPORT INFORMATION
  Report Type: 
  Country: None (occurrence: None)
  Receive Date: 20120112
  Receipt Date: 20111227
  Transmission Date: 20120608
  Serious: Yes (Death, Hospitalization)
  Sender: FDA-Public Use
  Company Number: SAN_00006_2012

PATIENT
  Age: 39 Year
  Sex: Male

DRUGS (2)
  1. TRANYLCYPROMINE SULFATE [Suspect]
     Indication: PRODUCT USED FOR UNKNOWN INDICATION
     Dosage: (40 MG 1X, NOT THE PRESCRIBED AMOUNT ORAL)
     Route: 048
  2. METFORMIN HCL [Suspect]
     Indication: PRODUCT USED FOR UNKNOWN INDICATION
     Dosage: (40 TO 60 X 1000 MG TABLETS ORAL)
     Route: 048

REACTIONS (13)
  - COMPLETED SUICIDE [None]
  - BLOOD LACTIC ACID DECREASED [None]
  - RENAL FAILURE [None]
  - PNEUMONIA [None]
  - BLOOD PH DECREASED [None]
  - HEPATIC FAILURE [None]
  - POISONING [None]
  - HYPOTENSION [None]
  - ACUTE RESPIRATORY DISTRESS SYNDROME [None]
  - ANION GAP INCREASED [None]
  - TACHYCARDIA [None]
  - BLOOD CREATININE INCREASED [None]
  - HAEMODIALYSIS [None]
